FAERS Safety Report 7397912-6 (Version None)
Quarter: 2011Q2

REPORT INFORMATION
  Report Type: 
  Country: None (occurrence: None)
  Receive Date: 20110406
  Receipt Date: 20110331
  Transmission Date: 20111010
  Serious: Yes (Death, Other)
  Sender: FDA-Public Use
  Company Number: PHHY2011US21719

PATIENT
  Sex: Male

DRUGS (10)
  1. FOLIC ACID [Concomitant]
  2. AMLODIPINE [Concomitant]
  3. AFINITOR [Suspect]
     Indication: RENAL CANCER
     Dosage: 1 DF, QD
     Route: 048
     Dates: start: 20110122
  4. GLIMEPIRIDE [Concomitant]
  5. PRAVACHOL [Concomitant]
  6. ASPIRIN [Concomitant]
  7. ACTOS [Concomitant]
  8. WARFARIN SODIUM [Concomitant]
  9. LASIX [Concomitant]
  10. MULTI-VITAMIN [Concomitant]

REACTIONS (39)
  - CARDIOMEGALY [None]
  - GRANULOMA [None]
  - ARTHRITIS [None]
  - CHILLS [None]
  - MYALGIA [None]
  - OEDEMA PERIPHERAL [None]
  - JOINT SWELLING [None]
  - ATELECTASIS [None]
  - VASCULAR CALCIFICATION [None]
  - ADRENAL ADENOMA [None]
  - BONE EROSION [None]
  - NEOPLASM MALIGNANT [None]
  - METASTASES TO LUNG [None]
  - METASTASES TO SKIN [None]
  - INTRACARDIAC MASS [None]
  - SKIN LESION [None]
  - CHOLELITHIASIS [None]
  - DYSPNOEA [None]
  - PULMONARY FIBROSIS [None]
  - ECZEMA [None]
  - ASTHENIA [None]
  - NOCTURIA [None]
  - BACK PAIN [None]
  - METASTASES TO BONE [None]
  - HERNIA [None]
  - BURSITIS [None]
  - EXOSTOSIS [None]
  - HYPOAESTHESIA [None]
  - SOMNOLENCE [None]
  - DIVERTICULITIS [None]
  - BONE LESION [None]
  - COUGH [None]
  - RENAL CYST [None]
  - FATIGUE [None]
  - LYMPHADENOPATHY [None]
  - BLOOD PRESSURE DECREASED [None]
  - PARAESTHESIA [None]
  - DECREASED APPETITE [None]
  - WEIGHT DECREASED [None]
